FAERS Safety Report 23078575 (Version 1)
Quarter: 2023Q4

REPORT INFORMATION
  Report Type: Spontaneous
  Country: GB (occurrence: None)
  Receive Date: 20231018
  Receipt Date: 20231018
  Transmission Date: 20240110
  Serious: Yes (Death, Life-Threatening)
  Sender: FDA-Public Use
  Company Number: 2023A233644

PATIENT
  Age: 85 Year
  Sex: Male

DRUGS (3)
  1. TAGRISSO [Suspect]
     Active Substance: OSIMERTINIB
     Dosage: TAGRISSO (OSIMERTINIB) TABLET 80MG
  2. BENZYDAMINE [Suspect]
     Active Substance: BENZYDAMINE
     Dosage: DIFFLAM ORAL RINSE 0.15% SOLUTION 300MLS
  3. HYPROMELLOSES [Suspect]
     Active Substance: HYPROMELLOSES
     Dosage: HYPROMELLOSE 0.3% EYE DROPS 10 ML

REACTIONS (1)
  - Death [Fatal]
